FAERS Safety Report 4385991-X (Version None)
Quarter: 2004Q2

REPORT INFORMATION
  Report Type: 
  Country: None (occurrence: None)
  Receive Date: 20040628
  Receipt Date: 20040618
  Transmission Date: 20050107
  Serious: Yes (Other)
  Sender: FDA-Public Use
  Company Number: FR-MERCK-0406FRA00094

PATIENT
  Age: 63 Year
  Sex: Female
  Weight: 52 kg

DRUGS (3)
  1. FOSAMAX [Suspect]
     Indication: OSTEOPOROSIS
     Route: 048
     Dates: start: 20030401, end: 20040517
  2. FOSAMAX [Suspect]
     Route: 048
     Dates: start: 20040524, end: 20040524
  3. COLCHICINE AND OPIUM, POWDERED AND TIEMONIUM METHYLSULFATE [Concomitant]
     Route: 065
     Dates: end: 20040517

REACTIONS (3)
  - ANGIONEUROTIC OEDEMA [None]
  - FACE OEDEMA [None]
  - MEDICATION ERROR [None]
